FAERS Safety Report 25876385 (Version 2)
Quarter: 2025Q4

REPORT INFORMATION
  Report Type: Report from Study
  Country: CA (occurrence: CA)
  Receive Date: 20251003
  Receipt Date: 20251129
  Transmission Date: 20260117
  Serious: Yes (Other)
  Sender: CELLTRION
  Company Number: CA-CELLTRION INC.-2025CA030943

PATIENT

DRUGS (2)
  1. INFLIXIMAB-DYYB [Suspect]
     Active Substance: INFLIXIMAB-DYYB
     Indication: Crohn^s disease
     Dosage: 437.5 MG, EVERY 4 WEEKS (5 MG/KG - MAINTENANCE)
     Route: 042
     Dates: start: 20250827
  2. INFLIXIMAB-DYYB [Suspect]
     Active Substance: INFLIXIMAB-DYYB
     Dosage: MAINTENANCE AT 5 MG/KG EVERY 4 WEEKS
     Route: 042
     Dates: start: 20250827

REACTIONS (2)
  - Hypertension [Unknown]
  - Off label use [Unknown]
